FAERS Safety Report 9233084 (Version 1)
Quarter: 2013Q2

REPORT INFORMATION
  Report Type: Spontaneous
  Country: GB (occurrence: GB)
  Receive Date: 20130416
  Receipt Date: 20130416
  Transmission Date: 20140414
  Serious: Yes (Other)
  Sender: FDA-Public Use
  Company Number: PHHY2013GB035173

PATIENT
  Age: 58 Year
  Sex: Male

DRUGS (11)
  1. EVEROLIMUS [Suspect]
     Indication: INSULINOMA
     Dosage: 10 MG, DAILY
     Dates: start: 200902
  2. EVEROLIMUS [Suspect]
     Dosage: 5 MG, DAILY
  3. EVEROLIMUS [Suspect]
     Dosage: 10 MG, DAILY
  4. OCTREOTIDE [Suspect]
     Indication: INSULINOMA
     Dosage: 300 UG, DAY
  5. OCTREOTIDE [Suspect]
     Dosage: 500 UG, DAILY
     Route: 058
  6. DIAZOXIDE [Suspect]
     Indication: INSULINOMA
     Dosage: UNK MG, UNK
  7. DIAZOXIDE [Suspect]
     Dosage: 150 MG, DAILY
  8. DIAZOXIDE [Suspect]
     Dosage: 350 MG, DAY
  9. PREDNISOLONE [Concomitant]
     Indication: THROMBOCYTOPENIC PURPURA
     Dosage: 30 MG, DAILY
  10. PREDNISOLONE [Concomitant]
     Dosage: 5 MG, DAILY
  11. TEMOZOLAMIDE [Concomitant]
     Indication: METASTASES TO LIVER
     Dosage: UNK
     Dates: start: 200901

REACTIONS (3)
  - Hypoglycaemia [Recovered/Resolved]
  - Alanine aminotransferase increased [Unknown]
  - Aspartate aminotransferase increased [Unknown]
